FAERS Safety Report 12448134 (Version 1)
Quarter: 2016Q2

REPORT INFORMATION
  Report Type: Spontaneous
  Country: US (occurrence: US)
  Receive Date: 20160608
  Receipt Date: 20160608
  Transmission Date: 20160815
  Serious: Yes (Hospitalization, Other)
  Sender: FDA-Public Use
  Company Number: US-ASTRAZENECA-2016SE59155

PATIENT
  Sex: Female

DRUGS (4)
  1. FASLODEX [Suspect]
     Active Substance: FULVESTRANT
     Indication: BREAST CANCER METASTATIC
     Route: 030
     Dates: start: 201210
  2. ANASTRAZOLE [Suspect]
     Active Substance: ANASTROZOLE
     Indication: BREAST CANCER METASTATIC
     Route: 048
     Dates: start: 201210
  3. IBRANCE [Concomitant]
     Active Substance: PALBOCICLIB
     Indication: HEPATIC CANCER
     Dosage: 125.0MG UNKNOWN
  4. EVISTA [Concomitant]
     Active Substance: RALOXIFENE HYDROCHLORIDE
     Dates: start: 201210

REACTIONS (6)
  - Pneumonia [Unknown]
  - Malignant neoplasm progression [Unknown]
  - Multiple fractures [Unknown]
  - Neutropenia [Unknown]
  - Breast cancer metastatic [None]
  - Road traffic accident [Unknown]
